FAERS Safety Report 5726809-X (Version None)
Quarter: 2008Q2

REPORT INFORMATION
  Report Type: 
  Country: None (occurrence: None)
  Receive Date: 20080502
  Receipt Date: 20080425
  Transmission Date: 20081010
  Serious: Yes (Life-Threatening)
  Sender: FDA-Public Use
  Company Number: JP-PFIZER INC-2008027443

PATIENT
  Sex: Female
  Weight: 53 kg

DRUGS (3)
  1. SOLU-CORTEF [Suspect]
     Indication: URTICARIA
     Dosage: DAILY DOSE:100MG
     Dates: start: 20080311, end: 20080311
  2. STRONG NEO-MINOPHAGEN C [Suspect]
     Indication: URTICARIA
     Dosage: DAILY DOSE:20ML
     Route: 042
     Dates: start: 20080311, end: 20080311
  3. MERCAZOLE [Concomitant]
     Indication: BASEDOW'S DISEASE
     Dosage: DAILY DOSE:30MG
     Route: 048

REACTIONS (1)
  - ANAPHYLACTOID REACTION [None]
